APPROVED DRUG PRODUCT: PROPAFENONE HYDROCHLORIDE
Active Ingredient: PROPAFENONE HYDROCHLORIDE
Strength: 325MG
Dosage Form/Route: CAPSULE, EXTENDED RELEASE;ORAL
Application: A203803 | Product #002
Applicant: MYLAN PHARMACEUTICALS INC
Approved: Apr 29, 2016 | RLD: No | RS: No | Type: DISCN